FAERS Safety Report 4645861-6 (Version None)
Quarter: 2005Q2

REPORT INFORMATION
  Report Type: 
  Country: None (occurrence: None)
  Receive Date: 20050425
  Receipt Date: 20050407
  Transmission Date: 20051028
  Serious: Yes (Other)
  Sender: FDA-Public Use
  Company Number: 8010130

PATIENT
  Age: 0 Day
  Sex: Female
  Weight: 2.8 kg

DRUGS (2)
  1. LEVETIRACETAM [Suspect]
     Indication: MYOCLONIC EPILEPSY
     Dosage: 1000 MG /D TRP
     Route: 064
  2. FOLIC ACID [Concomitant]

REACTIONS (3)
  - CAESAREAN SECTION [None]
  - DRUG EXPOSURE DURING PREGNANCY [None]
  - SMALL FOR DATES BABY [None]
